FAERS Safety Report 7516024-1 (Version None)
Quarter: 2011Q2

REPORT INFORMATION
  Report Type: 
  Country: None (occurrence: None)
  Receive Date: 20110520
  Receipt Date: 20110510
  Transmission Date: 20111010
  Serious: Yes (Hospitalization)
  Sender: FDA-Public Use
  Company Number: UTC-006994

PATIENT
  Age: 39 Year
  Sex: Female

DRUGS (1)
  1. REMODULIN [Suspect]
     Indication: PULMONARY ARTERIAL HYPERTENSION
     Dosage: 115.2 UG/KG (0.08 UG/KG, 1 IN 1 MIN) INTRAVENOUS
     Route: 042
     Dates: start: 20080101

REACTIONS (2)
  - CATHETER SITE PAIN [None]
  - DEVICE RELATED INFECTION [None]
